APPROVED DRUG PRODUCT: METHYLPREDNISOLONE
Active Ingredient: METHYLPREDNISOLONE
Strength: 32MG
Dosage Form/Route: TABLET;ORAL
Application: A040189 | Product #004 | TE Code: AB
Applicant: JUBILANT CADISTA PHARMACEUTICALS INC
Approved: Jul 20, 2007 | RLD: No | RS: No | Type: RX